FAERS Safety Report 8848328 (Version 2)
Quarter: 2012Q4

REPORT INFORMATION
  Report Type: 
  Country: AR (occurrence: AR)
  Receive Date: 20121019
  Receipt Date: 20121121
  Transmission Date: 20130627
  Serious: No
  Sender: FDA-Public Use
  Company Number: AR-AMGEN-ARGSP2012065965

PATIENT
  Age: 63 Year
  Sex: Female

DRUGS (2)
  1. ENBREL [Suspect]
     Indication: RHEUMATOID ARTHRITIS
     Dosage: 50 mg, weekly
     Route: 058
     Dates: start: 20110214, end: 201207
  2. ERVEMIN                            /00113801/ [Concomitant]
     Dosage: UNK

REACTIONS (1)
  - No adverse event [Unknown]
